FAERS Safety Report 4877292-8 (Version None)
Quarter: 2006Q1

REPORT INFORMATION
  Report Type: 
  Country: None (occurrence: None)
  Receive Date: 20060111
  Receipt Date: 20051130
  Transmission Date: 20060701
  Serious: Yes (Life-Threatening)
  Sender: FDA-Public Use
  Company Number: US-BRISTOL-MYERS SQUIBB COMPANY-13201017

PATIENT
  Age: 42 Year
  Sex: Female
  Weight: 49 kg

DRUGS (11)
  1. ERBITUX [Suspect]
     Indication: COLORECTAL CANCER
     Dosage: LOADING DOSE=400 MG/M2 INITIATED/INTERRUPTED, RE-STARTED AND COMPLETED 30-NOV-2005. DURATION: 4 HRS.
     Route: 042
     Dates: start: 20051130, end: 20051130
  2. BENADRYL [Concomitant]
     Indication: PREMEDICATION
     Route: 042
     Dates: start: 20051130, end: 20051130
  3. SOLU-MEDROL [Concomitant]
     Indication: PREMEDICATION
     Route: 042
     Dates: start: 20051130, end: 20051130
  4. DECADRON [Concomitant]
     Indication: PREMEDICATION
     Route: 042
     Dates: start: 20051130, end: 20051130
  5. MAXALT [Concomitant]
  6. ZYRTEC [Concomitant]
  7. COUMADIN [Concomitant]
  8. ZOFRAN [Concomitant]
  9. ATIVAN [Concomitant]
  10. VITAMIN E [Concomitant]
  11. ACYCLOVIR [Concomitant]

REACTIONS (9)
  - CHEST PAIN [None]
  - DIARRHOEA [None]
  - DYSPNOEA [None]
  - FEELING COLD [None]
  - FLUSHING [None]
  - HYPOTENSION [None]
  - PRURITUS [None]
  - RASH GENERALISED [None]
  - VOMITING [None]
